FAERS Safety Report 10418162 (Version 1)
Quarter: 2014Q2

REPORT INFORMATION
  Report Type: Spontaneous
  Country: US (occurrence: None)
  Receive Date: 20140609
  Receipt Date: 20140609
  Transmission Date: 20141212
  Serious: No
  Sender: FDA-Public Use
  Company Number: 2014TUS001467

PATIENT
  Age: 49 Year
  Sex: Female
  Weight: 83.9 kg

DRUGS (6)
  1. BRINTELLIX [Suspect]
     Indication: DEPRESSION
     Route: 048
     Dates: start: 20140211, end: 20140225
  2. LORAZEPAM (LORAZEPAM) [Concomitant]
  3. HYDROCHLOROTHIAZID (HYDROCHLOROTHIAZIDE) [Concomitant]
  4. SYNTHROID (LEVOTHYROXINE SODIUM) [Concomitant]
  5. ULTRAM (TRAMADOL HYDROCHLORIDE) [Concomitant]
  6. VERAPAMIL (VERAPAMIL) [Concomitant]

REACTIONS (1)
  - Nausea [None]
